FAERS Safety Report 17229083 (Version 3)
Quarter: 2020Q1

REPORT INFORMATION
  Report Type: Report from Study
  Country: CO (occurrence: CO)
  Receive Date: 20200103
  Receipt Date: 20200303
  Transmission Date: 20200409
  Serious: Yes (Other)
  Sender: FDA-Public Use
  Company Number: PHHY2018CO148970

PATIENT
  Sex: Female
  Weight: 52 kg

DRUGS (12)
  1. HYDROCHLOROTHIAZIDE. [Concomitant]
     Active Substance: HYDROCHLOROTHIAZIDE
     Indication: PRODUCT USED FOR UNKNOWN INDICATION
     Dosage: UNK
     Route: 065
  2. REVOLADE [Suspect]
     Active Substance: ELTROMBOPAG
     Dosage: 50 MG (ONE TABLET OF 50 MG) QD
     Route: 048
  3. ATORVASTATIN [Suspect]
     Active Substance: ATORVASTATIN
     Indication: PRODUCT USED FOR UNKNOWN INDICATION
     Dosage: UNK
     Route: 065
  4. REVOLADE [Suspect]
     Active Substance: ELTROMBOPAG
     Dosage: 75 MG, QD
     Route: 048
     Dates: start: 20181012
  5. REVOLADE [Suspect]
     Active Substance: ELTROMBOPAG
     Dosage: 50 MG (EVERY OTHER DAY)
     Route: 048
  6. REVOLADE [Suspect]
     Active Substance: ELTROMBOPAG
     Dosage: (ONE TABLET OF 50 MG ON MONDAYS AND FRIDAYS AND 25 MG ON TUESDAYS, WEDNESDAYS AND THURSDAYS)
     Route: 048
  7. REVOLADE [Suspect]
     Active Substance: ELTROMBOPAG
     Dosage: 50 MG, QD
     Route: 048
  8. METFORMIN HYDROCHLORIDE. [Suspect]
     Active Substance: METFORMIN HYDROCHLORIDE
     Indication: PRODUCT USED FOR UNKNOWN INDICATION
     Dosage: 850 MG, UNK
     Route: 065
  9. REVOLADE [Suspect]
     Active Substance: ELTROMBOPAG
     Indication: IMMUNE THROMBOCYTOPENIC PURPURA
     Dosage: 50 MG, QD
     Route: 048
     Dates: start: 20181002
  10. AMLODIPINE [Suspect]
     Active Substance: AMLODIPINE BESYLATE
     Indication: PRODUCT USED FOR UNKNOWN INDICATION
     Dosage: UNK
     Route: 065
  11. REVOLADE [Suspect]
     Active Substance: ELTROMBOPAG
     Dosage: 25 MG, EVERY OTHER DAY
     Route: 048
  12. LOSARTAN. [Suspect]
     Active Substance: LOSARTAN
     Indication: PRODUCT USED FOR UNKNOWN INDICATION
     Dosage: 50 MG, UNK
     Route: 065

REACTIONS (21)
  - Dry skin [Unknown]
  - Pain [Unknown]
  - Product prescribing error [Unknown]
  - Alopecia [Recovering/Resolving]
  - Dyspepsia [Recovering/Resolving]
  - Malaise [Recovering/Resolving]
  - Skin disorder [Recovering/Resolving]
  - Inappropriate schedule of product administration [Unknown]
  - Platelet count decreased [Unknown]
  - Myelofibrosis [Unknown]
  - Platelet disorder [Unknown]
  - Platelet count increased [Unknown]
  - Gastritis [Recovering/Resolving]
  - Haematoma [Unknown]
  - Diarrhoea [Recovering/Resolving]
  - Petechiae [Unknown]
  - Hair colour changes [Unknown]
  - Skin hyperpigmentation [Recovering/Resolving]
  - Contusion [Unknown]
  - Abdominal discomfort [Recovering/Resolving]
  - Pain in extremity [Unknown]
